FAERS Safety Report 4687215-2 (Version None)
Quarter: 2005Q2

REPORT INFORMATION
  Report Type: 
  Country: None (occurrence: None)
  Receive Date: 20050610
  Receipt Date: 20050602
  Transmission Date: 20051028
  Serious: Yes (Other)
  Sender: FDA-Public Use
  Company Number: PHHO2005CA08934

PATIENT
  Sex: Male

DRUGS (1)
  1. DIOVAN [Suspect]

REACTIONS (2)
  - FEELING HOT [None]
  - THROAT TIGHTNESS [None]
